FAERS Safety Report 8330014-0 (Version None)
Quarter: 2012Q2

REPORT INFORMATION
  Report Type: 
  Country: None (occurrence: None)
  Receive Date: 20120502
  Receipt Date: 20091223
  Transmission Date: 20120825
  Serious: No
  Sender: FDA-Public Use
  Company Number: US-TEVA-2009029861

PATIENT
  Sex: Female
  Weight: 77.18 kg

DRUGS (9)
  1. NUVIGIL [Suspect]
     Indication: DISTURBANCE IN ATTENTION
  2. OMEGA 3/FLAXSEED [Concomitant]
     Dates: start: 20090101
  3. ZOLOFT [Concomitant]
     Indication: DEPRESSION
     Dosage: 50 MILLICURIES;
     Dates: start: 20060101
  4. COUMADIN [Concomitant]
     Indication: THROMBOSIS PROPHYLAXIS
     Dates: start: 20080801
  5. FIORICET [Concomitant]
     Indication: MIGRAINE
     Dates: start: 20070101
  6. HYDROCHLOROTHIAZIDE [Concomitant]
     Indication: OEDEMA
     Dates: start: 20050101
  7. NUVIGIL [Suspect]
     Indication: SOMNOLENCE
     Dosage: 150 MILLIGRAM;
     Route: 048
     Dates: start: 20091221
  8. ZOLOFT [Concomitant]
     Indication: ANXIETY
  9. LORATADINE [Concomitant]
     Indication: MULTIPLE ALLERGIES
     Dates: start: 20090101

REACTIONS (3)
  - INSOMNIA [None]
  - FATIGUE [None]
  - MIGRAINE [None]
